FAERS Safety Report 6173781-7 (Version None)
Quarter: 2009Q2

REPORT INFORMATION
  Report Type: 
  Country: None (occurrence: None)
  Receive Date: 20090430
  Receipt Date: 20090423
  Transmission Date: 20091009
  Serious: Yes (Hospitalization)
  Sender: FDA-Public Use
  Company Number: US-GILEAD-2009-0021296

PATIENT
  Sex: Female
  Weight: 69 kg

DRUGS (13)
  1. LETAIRIS [Suspect]
     Indication: PULMONARY ARTERIAL HYPERTENSION
     Route: 048
     Dates: start: 20070701
  2. ASPIRIN [Suspect]
     Indication: PULMONARY EMBOLISM
  3. COUMADIN [Suspect]
     Indication: PULMONARY HYPERTENSION
  4. COUMADIN [Suspect]
     Indication: PULMONARY EMBOLISM
  5. COUMADIN [Suspect]
     Indication: ATRIAL FIBRILLATION
  6. REVATIO [Concomitant]
     Indication: PH BODY FLUID
     Dates: start: 20050823
  7. REMODULIN [Concomitant]
     Indication: PULMONARY HYPERTENSION
     Dates: start: 20090201
  8. LANOXIN [Concomitant]
     Indication: CARDIAC FAILURE CONGESTIVE
  9. AVAPRO [Concomitant]
     Indication: HYPERTENSION
  10. TOPROL-XL [Concomitant]
     Indication: HYPERTENSION
  11. TOPROL-XL [Concomitant]
     Indication: CARDIAC FAILURE CONGESTIVE
  12. LASIX [Concomitant]
     Indication: CARDIAC FAILURE CONGESTIVE
  13. ALDACTONE [Concomitant]
     Indication: CARDIAC FAILURE CONGESTIVE

REACTIONS (1)
  - LOWER GASTROINTESTINAL HAEMORRHAGE [None]
